FAERS Safety Report 8585950-7 (Version None)
Quarter: 2012Q3

REPORT INFORMATION
  Report Type: 
  Country: None (occurrence: None)
  Receive Date: 20120802
  Receipt Date: 20120802
  Transmission Date: 20120928
  Serious: Yes (Hospitalization)
  Sender: FDA-Public Use
  Company Number: None

PATIENT
  Sex: Male
  Weight: 31.9 kg

DRUGS (1)
  1. TACROLIMUS [Suspect]
     Dosage: 20.3 MG

REACTIONS (4)
  - SIMPLEX VIRUS TEST POSITIVE [None]
  - RESPIRATORY FAILURE [None]
  - ENTEROBACTER TEST POSITIVE [None]
  - HUMAN RHINOVIRUS TEST POSITIVE [None]
